FAERS Safety Report 4539001-1 (Version None)
Quarter: 2004Q4

REPORT INFORMATION
  Report Type: 
  Country: None (occurrence: None)
  Receive Date: 20041222
  Receipt Date: 20041201
  Transmission Date: 20050328
  Serious: No
  Sender: FDA-Public Use
  Company Number: USA041284992

PATIENT
  Age: 83 Year
  Sex: Female

DRUGS (6)
  1. ZYPREXA [Suspect]
     Indication: DEMENTIA
     Dosage: 5 MG/1 DAY
     Dates: start: 20041110
  2. BABY ASIRIN (ACETYLSALICYLIC ACID) [Concomitant]
  3. REMERON (MIRTAZAPINE ORIFARM) [Concomitant]
  4. LISINOPRIL [Concomitant]
  5. LIPITOR [Concomitant]
  6. PRILOSEC (OMEPRAZOLE RATIOPHARM) [Concomitant]

REACTIONS (3)
  - DRUG EFFECT DECREASED [None]
  - SKIN BLEEDING [None]
  - TREATMENT NONCOMPLIANCE [None]
